FAERS Safety Report 8920183 (Version 2)
Quarter: 2012Q4

REPORT INFORMATION
  Report Type: Report from Study
  Country: DE (occurrence: DE)
  Receive Date: 20121122
  Receipt Date: 20121207
  Transmission Date: 20130627
  Serious: Yes (Hospitalization)
  Sender: FDA-Public Use
  Company Number: DE-ROCHE-1153484

PATIENT
  Age: 25 Year
  Sex: Male
  Weight: 100.4 kg

DRUGS (6)
  1. MYCOPHENOLATE MOFETIL [Suspect]
     Indication: RENAL TRANSPLANT
     Dosage: last dose proir to onset of SAE on 19/apr/2011
     Route: 048
     Dates: start: 20110321
  2. BASILIXIMAB [Suspect]
     Indication: RENAL TRANSPLANT
     Dosage: last dose proir to SAE on 26/Mar/2011
     Route: 048
     Dates: start: 20110322
  3. TACROLIMUS [Suspect]
     Indication: RENAL TRANSPLANT
     Dosage: last dose proir to SAE on 19/Apr/2011
     Route: 048
     Dates: start: 20110321
  4. TACROLIMUS [Suspect]
     Route: 048
  5. PREDNISOLONE [Suspect]
     Indication: RENAL TRANSPLANT
     Dosage: last dose prior to SAE on 29/Mar/2011
     Route: 048
     Dates: start: 20110322, end: 20120329
  6. PREDNISOLONE [Suspect]
     Route: 048
     Dates: start: 20110425

REACTIONS (1)
  - Graft dysfunction [Recovered/Resolved]
